FAERS Safety Report 19500446 (Version 1)
Quarter: 2021Q3

REPORT INFORMATION
  Report Type: Spontaneous
  Country: TR (occurrence: TR)
  Receive Date: 20210706
  Receipt Date: 20210706
  Transmission Date: 20211014
  Serious: Yes (Hospitalization)
  Sender: FDA-Public Use
  Company Number: TR-ASTRAZENECA-2021A580530

PATIENT
  Age: 19 Year
  Sex: Female

DRUGS (6)
  1. CLONAZEPAM. [Concomitant]
     Active Substance: CLONAZEPAM
     Indication: DEVELOPMENTAL DELAY
     Route: 065
  2. BIPERIDEN [Concomitant]
     Active Substance: BIPERIDEN
     Indication: PSYCHOTIC DISORDER
     Route: 065
  3. BIPERIDEN [Concomitant]
     Active Substance: BIPERIDEN
     Indication: DEVELOPMENTAL DELAY
     Route: 065
  4. SEROQUEL [Suspect]
     Active Substance: QUETIAPINE FUMARATE
     Indication: DEVELOPMENTAL DELAY
     Route: 048
  5. CLONAZEPAM. [Concomitant]
     Active Substance: CLONAZEPAM
     Indication: PSYCHOTIC DISORDER
     Route: 065
  6. SEROQUEL [Suspect]
     Active Substance: QUETIAPINE FUMARATE
     Indication: PSYCHOTIC DISORDER
     Route: 048

REACTIONS (1)
  - Neuroleptic malignant syndrome [Unknown]
